FAERS Safety Report 4677786-4 (Version None)
Quarter: 2005Q2

REPORT INFORMATION
  Report Type: 
  Country: None (occurrence: None)
  Receive Date: 20050531
  Receipt Date: 20050520
  Transmission Date: 20051028
  Serious: Yes (Hospitalization)
  Sender: FDA-Public Use
  Company Number: US-JNJFOC-20050506087

PATIENT
  Sex: Female
  Weight: 111.13 kg

DRUGS (5)
  1. DURAGESIC-100 [Suspect]
     Route: 062
     Dates: start: 20040101
  2. VICODIN [Concomitant]
     Route: 049
     Dates: start: 20050201
  3. VICODIN [Concomitant]
     Indication: PAIN
     Route: 049
     Dates: start: 20050201
  4. GLUCOPHAGE [Concomitant]
     Route: 049
     Dates: start: 20020101
  5. INSULIN [Concomitant]
     Dosage: STRENGTH 70/30, 50 U IN 24 HOURS
     Route: 058
     Dates: start: 20030101

REACTIONS (4)
  - DERMATITIS CONTACT [None]
  - INCISION SITE COMPLICATION [None]
  - PAIN [None]
  - STAPHYLOCOCCAL INFECTION [None]
